FAERS Safety Report 18102802 (Version 1)
Quarter: 2020Q3

REPORT INFORMATION
  Report Type: Spontaneous
  Country: US (occurrence: US)
  Receive Date: 20200803
  Receipt Date: 20200803
  Transmission Date: 20201103
  Serious: No
  Sender: FDA-Public Use
  Company Number: US-GLAXOSMITHKLINE-US2020141535

PATIENT
  Age: 38 Year
  Sex: Female

DRUGS (1)
  1. BENLYSTA [Suspect]
     Active Substance: BELIMUMAB
     Indication: PRODUCT USED FOR UNKNOWN INDICATION
     Dosage: 200 MG/ML, WE
     Route: 058
     Dates: start: 20200724

REACTIONS (2)
  - Injection site swelling [Recovered/Resolved with Sequelae]
  - Injection site pain [Recovered/Resolved with Sequelae]

NARRATIVE: CASE EVENT DATE: 20200724
